FAERS Safety Report 9286047 (Version 1)
Quarter: 2013Q2

REPORT INFORMATION
  Report Type: Spontaneous
  Country: FI (occurrence: FI)
  Receive Date: 20130513
  Receipt Date: 20130513
  Transmission Date: 20140414
  Serious: Yes (Death)
  Sender: FDA-Public Use
  Company Number: FI-ASTRAZENECA-2013SE32210

PATIENT
  Age: 67 Year
  Sex: Male
  Weight: 118 kg

DRUGS (3)
  1. BUPIVACAINE [Suspect]
     Indication: ANALGESIC THERAPY
     Dosage: 1 MG/ML AT 88 ML/H
     Route: 008
  2. FENTANYL [Suspect]
     Indication: ANALGESIC THERAPY
     Dosage: 4 UG/ML AT 88 ML/H
     Route: 008
  3. GENERAL ANAESTHESIA [Concomitant]

REACTIONS (4)
  - Overdose [Fatal]
  - Incorrect drug administration rate [Fatal]
  - Circulatory collapse [Fatal]
  - Brain injury [Fatal]
